FAERS Safety Report 5574925-8 (Version None)
Quarter: 2007Q4

REPORT INFORMATION
  Report Type: 
  Country: None (occurrence: None)
  Receive Date: 20071227
  Receipt Date: 20071218
  Transmission Date: 20080405
  Serious: Yes (Hospitalization)
  Sender: FDA-Public Use
  Company Number: A0688274A

PATIENT
  Age: 78 Year
  Sex: Female

DRUGS (5)
  1. VERAMYST [Suspect]
     Dosage: 27.5MCG UNKNOWN
     Route: 045
     Dates: start: 20071001, end: 20071001
  2. ACTONEL [Concomitant]
  3. SLEEP AID [Concomitant]
  4. ALPRAZOLAM [Concomitant]
  5. LESCOL [Concomitant]

REACTIONS (5)
  - ANOREXIA [None]
  - DRUG INEFFECTIVE [None]
  - DYSGRAPHIA [None]
  - GASTROOESOPHAGEAL REFLUX DISEASE [None]
  - PHARMACEUTICAL PRODUCT COMPLAINT [None]
